FAERS Safety Report 8501049-X (Version None)
Quarter: 2012Q2

REPORT INFORMATION
  Report Type: 
  Country: None (occurrence: None)
  Receive Date: 20120405
  Receipt Date: 20110214
  Transmission Date: 20120825
  Serious: Yes (Life-Threatening)
  Sender: FDA-Public Use
  Company Number: PHHY2011US15202

PATIENT

DRUGS (2)
  1. RECLAST [Suspect]
     Indication: OSTEOPOROSIS
     Dosage: INFUSION
  2. FORTEO [Concomitant]

REACTIONS (2)
  - ATRIAL FIBRILLATION [None]
  - EXOSTOSIS [None]
